FAERS Safety Report 11360453 (Version 1)
Quarter: 2015Q3

REPORT INFORMATION
  Report Type: Report from Study
  Country: US (occurrence: US)
  Receive Date: 20150810
  Receipt Date: 20150810
  Transmission Date: 20151125
  Serious: No
  Sender: FDA-Public Use
  Company Number: PHEH2014US020666

PATIENT
  Age: 32 Year
  Sex: Female

DRUGS (6)
  1. EXTAVIA [Suspect]
     Active Substance: INTERFERON BETA-1B
     Indication: MULTIPLE SCLEROSIS
     Dosage: 0.062 MG, (0.25 ML, IN WEEK 1 TO 2), QOD
     Route: 058
     Dates: start: 20140912
  2. EXTAVIA [Suspect]
     Active Substance: INTERFERON BETA-1B
     Dosage: 0.25 MG, QOD (1 ML IN WEEK 7)
     Route: 058
  3. EXTAVIA [Suspect]
     Active Substance: INTERFERON BETA-1B
     Dosage: 0.125 MG, (0.5 ML, IN WEEK 3 TO 4) QOD
     Route: 058
  4. EXTAVIA [Suspect]
     Active Substance: INTERFERON BETA-1B
     Dosage: 0.187 MG, (0.75 ML IN WEEK 5 TO 6) QOD
     Route: 058
  5. EXTAVIA [Suspect]
     Active Substance: INTERFERON BETA-1B
     Dosage: 0.25 MG, QOD (1 ML IN WEEK 7)
     Route: 058
  6. EXTAVIA [Suspect]
     Active Substance: INTERFERON BETA-1B
     Dosage: 0.187 MG, (0.75 ML IN WEEK 5 TO 6) QOD
     Route: 058

REACTIONS (7)
  - Injection site pain [Recovered/Resolved]
  - Maternal exposure during pregnancy [Unknown]
  - Injection site irritation [Recovered/Resolved]
  - Headache [Recovered/Resolved]
  - Mass [Recovered/Resolved]
  - Injection site mass [Recovering/Resolving]
  - Injection site bruising [Recovering/Resolving]

NARRATIVE: CASE EVENT DATE: 20141010
